FAERS Safety Report 10442609 (Version 1)
Quarter: 2014Q3

REPORT INFORMATION
  Report Type: Spontaneous
  Country: US (occurrence: US)
  Receive Date: 20140909
  Receipt Date: 20140909
  Transmission Date: 20150326
  Serious: Yes (Other)
  Sender: FDA-Public Use
  Company Number: ALCN2014US004958

PATIENT
  Age: 75 Year
  Sex: Female

DRUGS (5)
  1. SIMBRINZA [Suspect]
     Active Substance: BRIMONIDINE TARTRATE\BRINZOLAMIDE
     Indication: OPEN ANGLE GLAUCOMA
     Dosage: 1 GTT, BID
     Route: 047
     Dates: start: 20140801, end: 20140903
  2. BETOPTIC S [Suspect]
     Active Substance: BETAXOLOL HYDROCHLORIDE
     Indication: GLAUCOMA
     Dosage: 1 GTT, BID
     Route: 047
     Dates: start: 20140801, end: 20140903
  3. LISINOPRIL + HIDROCLOROTIAZIDA [Concomitant]
     Active Substance: HYDROCHLOROTHIAZIDE\LISINOPRIL
     Indication: BLOOD PRESSURE
     Dosage: 1 DF, QD
     Route: 048
  4. LEVOTHYROXINE [Concomitant]
     Active Substance: LEVOTHYROXINE
     Indication: HYPOTHYROIDISM
     Dosage: 25 MG, QD
     Route: 048
  5. ASPIRIN. [Concomitant]
     Active Substance: ASPIRIN
     Indication: GOUT
     Dosage: 88 MG, QD
     Route: 048

REACTIONS (4)
  - Dry mouth [Recovered/Resolved]
  - Hypotension [Recovered/Resolved]
  - Lethargy [Recovered/Resolved]
  - Nausea [Recovered/Resolved]

NARRATIVE: CASE EVENT DATE: 20140830
